FAERS Safety Report 18655683 (Version 1)
Quarter: 2020Q4

REPORT INFORMATION
  Report Type: Spontaneous
  Country: US (occurrence: US)
  Receive Date: 20201223
  Receipt Date: 20201223
  Transmission Date: 20210114
  Serious: No
  Sender: FDA-Public Use
  Company Number: US-ASTRAZENECA-2020SF62019

PATIENT
  Age: 75 Year
  Sex: Female

DRUGS (16)
  1. FARXIGA [Suspect]
     Active Substance: DAPAGLIFLOZIN PROPANEDIOL
     Indication: TYPE 2 DIABETES MELLITUS
     Route: 048
     Dates: start: 20201028, end: 20201130
  2. ATORVASTATIN [Concomitant]
     Active Substance: ATORVASTATIN
  3. ZYRTEC [Concomitant]
     Active Substance: CETIRIZINE HYDROCHLORIDE
  4. SYNTHROID [Concomitant]
     Active Substance: LEVOTHYROXINE SODIUM
  5. HYDROCHLOROTHIAZIDE. [Concomitant]
     Active Substance: HYDROCHLOROTHIAZIDE
  6. TRAMADOL. [Concomitant]
     Active Substance: TRAMADOL
  7. FARXIGA [Suspect]
     Active Substance: DAPAGLIFLOZIN PROPANEDIOL
     Indication: PROPHYLAXIS
     Route: 048
     Dates: start: 20201028, end: 20201130
  8. PROAIR HFA [Concomitant]
     Active Substance: ALBUTEROL SULFATE
  9. FLONASE [Concomitant]
     Active Substance: FLUTICASONE PROPIONATE
  10. ATENOLOL. [Concomitant]
     Active Substance: ATENOLOL
  11. PROTONIX [Concomitant]
     Active Substance: PANTOPRAZOLE SODIUM
  12. ALLEGRA [Concomitant]
     Active Substance: FEXOFENADINE HYDROCHLORIDE
  13. ENALAPRIL [Concomitant]
     Active Substance: ENALAPRIL
  14. FLEXERIL [Concomitant]
     Active Substance: CYCLOBENZAPRINE HYDROCHLORIDE
  15. JANUVIA [Concomitant]
     Active Substance: SITAGLIPTIN PHOSPHATE
  16. OSCAL [Concomitant]
     Active Substance: CALCIUM CARBONATE

REACTIONS (3)
  - Gastrooesophageal reflux disease [Unknown]
  - Pain in extremity [Unknown]
  - Blood pressure increased [Unknown]
